FAERS Safety Report 8960521 (Version 3)
Quarter: 2013Q1

REPORT INFORMATION
  Report Type: Spontaneous
  Country: JP (occurrence: None)
  Receive Date: 20121203
  Receipt Date: 20130204
  Transmission Date: 20140127
  Serious: Yes (Hospitalization)
  Sender: FDA-Public Use
  Company Number: TCI2012A05666

PATIENT
  Age: 62 Year
  Sex: Female

DRUGS (10)
  1. TAKEPRON [Suspect]
     Indication: PROPHYLAXIS AGAINST GASTROINTESTINAL ULCER
     Route: 048
     Dates: start: 20070907, end: 20081121
  2. PROGRAF [Suspect]
     Indication: SYSTEMIC LUPUS ERYTHEMATOSUS
     Route: 048
     Dates: start: 20071019, end: 20071028
  3. VFEND (VORICONAZOLE) INFUSION [Suspect]
     Indication: FUNGAL INFECTION
     Route: 048
     Dates: start: 20071201, end: 20071201
  4. ITRIZOLE [Suspect]
     Indication: FUNGAL INFECTION
     Route: 048
     Dates: start: 20071029, end: 20071029
  5. DIFLUCAN [Suspect]
     Indication: FUNGAL INFECTION
     Route: 048
     Dates: start: 20071106, end: 20071113
  6. BLOPRESS (CANDESARTAN CILEXETIL) [Concomitant]
  7. PREDONINE (PREDNISOLONE) [Concomitant]
  8. GLUFAST (MITIGLINIDE CALCIUM) [Concomitant]
  9. SELBREX (TEPRENONE) [Concomitant]
  10. MAGLAX [Concomitant]

REACTIONS (5)
  - Systemic mycosis [None]
  - Drug interaction [None]
  - Immunosuppressant drug level increased [None]
  - Drug level increased [None]
  - Oral candidiasis [None]
